FAERS Safety Report 8584966-4 (Version None)
Quarter: 2012Q3

REPORT INFORMATION
  Report Type: 
  Country: None (occurrence: None)
  Receive Date: 20120810
  Receipt Date: 20120803
  Transmission Date: 20120928
  Serious: Yes (Hospitalization)
  Sender: FDA-Public Use
  Company Number: US-BAYER-2012-070213

PATIENT
  Age: 86 Year
  Sex: Female
  Weight: 92 kg

DRUGS (7)
  1. XARELTO [Suspect]
     Indication: CEREBROVASCULAR ACCIDENT PROPHYLAXIS
     Dosage: 15 MG, QD
     Route: 048
  2. XARELTO [Suspect]
     Indication: ATRIAL FIBRILLATION
  3. CLOPIDOGREL [Suspect]
     Indication: CORONARY ARTERY DISEASE
     Route: 048
  4. XARELTO [Suspect]
     Dosage: 15 MG, QD
     Route: 048
  5. XARELTO [Suspect]
  6. ASPIRIN [Suspect]
     Indication: PRODUCT USED FOR UNKNOWN INDICATION
     Dosage: DAILY DOSE 81 MG
     Route: 048
  7. CELEBREX [Concomitant]
     Route: 048

REACTIONS (5)
  - ABDOMINAL PAIN [None]
  - GASTROINTESTINAL HAEMORRHAGE [None]
  - NAUSEA [None]
  - GASTRITIS EROSIVE [None]
  - GASTRIC ULCER [None]
